FAERS Safety Report 14028302 (Version 10)
Quarter: 2019Q1

REPORT INFORMATION
  Report Type: Report from Study
  Country: US (occurrence: US)
  Receive Date: 20170930
  Receipt Date: 20190102
  Transmission Date: 20190417
  Serious: Yes (Hospitalization, Disabling, Other)
  Sender: FDA-Public Use
  Company Number: US-TESARO, INC-US-2017TSO01786

PATIENT
  Age: 62 Year
  Sex: Female
  Weight: 51.7 kg

DRUGS (11)
  1. ZEJULA [Suspect]
     Active Substance: NIRAPARIB
     Dosage: 200 MG, QPM
     Route: 048
  2. ZEJULA [Suspect]
     Active Substance: NIRAPARIB
     Dosage: 200 MG, QD
     Route: 048
     Dates: start: 20170921
  3. ZEJULA [Suspect]
     Active Substance: NIRAPARIB
     Dosage: 200 MG, QD
     Route: 048
  4. PRINZIDE [Concomitant]
     Active Substance: HYDROCHLOROTHIAZIDE\LISINOPRIL
     Indication: PRODUCT USED FOR UNKNOWN INDICATION
     Dosage: UNK
     Route: 048
  5. ZESTORETIC [Concomitant]
     Active Substance: HYDROCHLOROTHIAZIDE\LISINOPRIL
     Indication: PRODUCT USED FOR UNKNOWN INDICATION
     Dosage: UNK
     Route: 048
  6. ZEJULA [Suspect]
     Active Substance: NIRAPARIB
     Dosage: 300 MG, QD
     Route: 048
     Dates: end: 20170831
  7. ZEJULA [Suspect]
     Active Substance: NIRAPARIB
     Dosage: 200 MG,QPM
     Route: 048
     Dates: start: 20170701
  8. NEXIUM [Concomitant]
     Active Substance: ESOMEPRAZOLE MAGNESIUM
     Indication: PRODUCT USED FOR UNKNOWN INDICATION
     Dosage: UNK
     Route: 048
  9. GABAPENTIN. [Concomitant]
     Active Substance: GABAPENTIN
     Indication: PRODUCT USED FOR UNKNOWN INDICATION
     Dosage: 1 DF, QD
     Route: 048
  10. RESTORIL [Concomitant]
     Active Substance: TEMAZEPAM
     Indication: INSOMNIA
     Dosage: 1 DF, QD
     Route: 048
     Dates: start: 20170831
  11. ZEJULA [Suspect]
     Active Substance: NIRAPARIB
     Indication: MALIGNANT PERITONEAL NEOPLASM
     Dosage: 300 MG, QD
     Route: 048
     Dates: start: 20170701

REACTIONS (38)
  - Abdominal distension [Recovered/Resolved]
  - Palpitations [Recovered/Resolved]
  - Dyspepsia [Recovered/Resolved]
  - Bone marrow failure [Recovered/Resolved]
  - Bronchitis [Recovered/Resolved]
  - Neutrophil count decreased [Recovered/Resolved]
  - Thrombocytopenia [Recovered/Resolved]
  - Crying [Recovered/Resolved]
  - Weight decreased [Recovered/Resolved]
  - Product supply issue [Unknown]
  - White blood cell count decreased [Not Recovered/Not Resolved]
  - Asthenia [Not Recovered/Not Resolved]
  - Stress [Recovered/Resolved]
  - Muscular weakness [Not Recovered/Not Resolved]
  - Loss of personal independence in daily activities [Recovered/Resolved]
  - Decreased appetite [Recovered/Resolved]
  - Fatigue [Recovered/Resolved]
  - Anxiety [Recovered/Resolved]
  - Pulmonary mass [Recovered/Resolved]
  - Anaemia [Recovered/Resolved]
  - Haemoglobin decreased [Not Recovered/Not Resolved]
  - Sleep disorder [Recovered/Resolved]
  - Respiration abnormal [Recovered/Resolved]
  - Weight increased [Recovered/Resolved]
  - Rash maculo-papular [Recovered/Resolved]
  - Neuroma [Recovered/Resolved]
  - Patient dissatisfaction with treatment [Recovered/Resolved]
  - Disability [Not Recovered/Not Resolved]
  - Blood pressure increased [Recovered/Resolved]
  - Red blood cell count decreased [Not Recovered/Not Resolved]
  - Cystitis [Recovered/Resolved]
  - Haematuria [Recovered/Resolved]
  - Carbohydrate antigen 125 increased [Not Recovered/Not Resolved]
  - Confusional state [Recovered/Resolved]
  - Neuropathy peripheral [Recovered/Resolved]
  - Emotional distress [Recovered/Resolved]
  - Cough [Recovered/Resolved]
  - Constipation [Recovered/Resolved]

NARRATIVE: CASE EVENT DATE: 201707
